FAERS Safety Report 20112581 (Version 4)
Quarter: 2022Q4

REPORT INFORMATION
  Report Type: Report from Study
  Country: MY (occurrence: MY)
  Receive Date: 20211125
  Receipt Date: 20221107
  Transmission Date: 20230113
  Serious: Yes (Death, Hospitalization, Disabling, Other)
  Sender: FDA-Public Use
  Company Number: MY-NOVARTISPH-NVSC2021MY268505

PATIENT
  Age: 7 Year
  Sex: Male
  Weight: 16.6 kg

DRUGS (5)
  1. TRAMETINIB [Suspect]
     Active Substance: TRAMETINIB
     Indication: Neurofibroma
     Dosage: 0.45 MG, QD
     Route: 048
     Dates: start: 20210506, end: 20211108
  2. TRAMETINIB [Suspect]
     Active Substance: TRAMETINIB
     Dosage: 0.025 MG/KG, QD
     Route: 048
  3. GABAPENTIN [Concomitant]
     Active Substance: GABAPENTIN
     Indication: Neuralgia
     Dosage: 300 MG (TDS)
     Route: 065
     Dates: end: 20211108
  4. FENTANYL TRANSDERMAL SYSTEM [Concomitant]
     Active Substance: FENTANYL
     Indication: Neuralgia
     Dosage: 12 MCG EVERY 3 DAYS
     Route: 065
     Dates: end: 20211108
  5. LACTULOSE [Concomitant]
     Active Substance: LACTULOSE
     Indication: Constipation
     Dosage: UNK, PRN
     Route: 065
     Dates: end: 20211108

REACTIONS (9)
  - Death [Fatal]
  - Malignant transformation [Not Recovered/Not Resolved]
  - Neurofibroma [Unknown]
  - Neoplasm progression [Unknown]
  - Neurofibrosarcoma [Unknown]
  - Paraplegia [Unknown]
  - Nervous system disorder [Unknown]
  - Urinary incontinence [Unknown]
  - Anal incontinence [Unknown]

NARRATIVE: CASE EVENT DATE: 20211108
